FAERS Safety Report 4548763-9 (Version None)
Quarter: 2005Q1

REPORT INFORMATION
  Report Type: 
  Country: None (occurrence: None)
  Receive Date: 20050107
  Receipt Date: 20050107
  Transmission Date: 20050727
  Serious: Yes (Hospitalization)
  Sender: FDA-Public Use
  Company Number: None

PATIENT
  Age: 79 Year
  Sex: Female
  Weight: 65.318 kg

DRUGS (2)
  1. ENOXAPARIN SODIUM [Suspect]
     Indication: MYOCARDIAL INFARCTION
     Dosage: 60 MG   BID   SUBCUTANEO
     Route: 058
     Dates: start: 20041222, end: 20041227
  2. INTEGRILIN [Suspect]
     Indication: MYOCARDIAL INFARCTION
     Dosage: 4.2 MG    4.2 MG/HR   INTRAVENOU
     Route: 042
     Dates: start: 20041224, end: 20041225

REACTIONS (3)
  - BLOOD UREA INCREASED [None]
  - DIVERTICULUM INTESTINAL HAEMORRHAGIC [None]
  - HAEMOGLOBIN DECREASED [None]
